FAERS Safety Report 20149290 (Version 1)
Quarter: 2021Q4

REPORT INFORMATION
  Report Type: Spontaneous
  Country: US (occurrence: US)
  Receive Date: 20211205
  Receipt Date: 20211205
  Transmission Date: 20220303
  Serious: Yes (Hospitalization, Other)
  Sender: FDA-Public Use
  Company Number: US-SAMSUNG BIOEPIS-SB-2021-27902

PATIENT
  Age: 70 Year
  Sex: Female

DRUGS (7)
  1. INFLIXIMAB [Suspect]
     Active Substance: INFLIXIMAB
     Indication: Psoriasis
     Dosage: UNKNOWN
     Route: 065
  2. VORICONAZOLE [Suspect]
     Active Substance: VORICONAZOLE
     Indication: Histoplasmosis disseminated
     Dosage: UNKNOWN
     Route: 042
  3. VORICONAZOLE [Suspect]
     Active Substance: VORICONAZOLE
     Dosage: UNKNOWN
     Route: 048
  4. AMPHOTERICIN B [Suspect]
     Active Substance: AMPHOTERICIN B
     Indication: Histoplasmosis disseminated
     Dosage: UNKNOWN
     Route: 042
  5. ITRACONAZOLE [Suspect]
     Active Substance: ITRACONAZOLE
     Indication: Histoplasmosis disseminated
     Dosage: UNKNOWN. SOLUTION. FOR SIX WEEKS FOLLOWED BY ONE ADDITIONAL YEAR OF TREATMENT
     Route: 048
  6. ACETAMINOPHEN [Concomitant]
     Active Substance: ACETAMINOPHEN
     Indication: Product used for unknown indication
     Dosage: UNKNOWN
     Route: 065
  7. NAPROXEN [Concomitant]
     Active Substance: NAPROXEN
     Indication: Product used for unknown indication
     Dosage: UNKNOWN
     Route: 065

REACTIONS (10)
  - Histoplasmosis disseminated [Recovered/Resolved]
  - Acute hepatic failure [Recovering/Resolving]
  - Encephalopathy [Unknown]
  - Immune reconstitution inflammatory syndrome [Recovering/Resolving]
  - Splenomegaly [Unknown]
  - General physical health deterioration [Recovered/Resolved]
  - Gastrointestinal disorder [Unknown]
  - Cell-mediated immune deficiency [Unknown]
  - Hepatic necrosis [Unknown]
  - Off label use [Unknown]
